FAERS Safety Report 14882766 (Version 1)
Quarter: 2018Q2

REPORT INFORMATION
  Report Type: Spontaneous
  Country: NO (occurrence: NO)
  Receive Date: 20180511
  Receipt Date: 20180511
  Transmission Date: 20180711
  Serious: Yes (Other)
  Sender: FDA-Public Use
  Company Number: NO-BIOVERATIV-2018BV000242

PATIENT
  Age: 13 Month
  Sex: Male
  Weight: 11 kg

DRUGS (4)
  1. ELOCTA [Suspect]
     Active Substance: EFMOROCTOCOG ALFA
     Indication: FACTOR VIII DEFICIENCY
     Route: 065
     Dates: start: 201803
  2. ELOCTA [Suspect]
     Active Substance: EFMOROCTOCOG ALFA
     Indication: IMMUNE TOLERANCE INDUCTION
     Route: 065
     Dates: start: 201802
  3. ELOCTA [Suspect]
     Active Substance: EFMOROCTOCOG ALFA
     Dosage: (TO ACHIEVE 200 IU/KG?DAILY)
     Route: 065
     Dates: start: 2018
  4. NOVOSEVEN [Concomitant]
     Active Substance: COAGULATION FACTOR VIIA RECOMBINANT HUMAN
     Indication: HAEMORRHAGE
     Route: 065

REACTIONS (4)
  - Haemorrhage [Unknown]
  - Anti factor VIII antibody increased [Unknown]
  - Factor VIII inhibition [Unknown]
  - Off label use [Unknown]

NARRATIVE: CASE EVENT DATE: 2018
